FAERS Safety Report 20571828 (Version 1)
Quarter: 2022Q1

REPORT INFORMATION
  Report Type: Spontaneous
  Country: HR (occurrence: HR)
  Receive Date: 20220309
  Receipt Date: 20220309
  Transmission Date: 20220423
  Serious: Yes (Other)
  Sender: FDA-Public Use
  Company Number: None

PATIENT
  Age: 52 Year
  Sex: Male

DRUGS (2)
  1. RISPERIDONE [Suspect]
     Active Substance: RISPERIDONE
     Dosage: 20MG,ADDITIONAL INFORMATION:ARE ADRS ADEQUATELY LABELED: NO
     Route: 048
     Dates: start: 20210823, end: 20210823
  2. CLOZAPINE [Suspect]
     Active Substance: CLOZAPINE
     Dosage: 1GM,ADDITIONAL INFORMATION:ARE ADRS ADEQUATELY LABELED: NO
     Route: 065
     Dates: start: 20210823, end: 20210823

REACTIONS (3)
  - Suicide attempt [Unknown]
  - Sopor [Unknown]
  - Overdose [Unknown]

NARRATIVE: CASE EVENT DATE: 20210823
